FAERS Safety Report 10549422 (Version 3)
Quarter: 2016Q2

REPORT INFORMATION
  Report Type: Spontaneous
  Country: US (occurrence: US)
  Receive Date: 20141028
  Receipt Date: 20160414
  Transmission Date: 20160815
  Serious: Yes (Hospitalization, Other)
  Sender: FDA-Public Use
  Company Number: US-BAYER-2014-154386

PATIENT
  Age: 22 Year
  Sex: Female
  Weight: 53.52 kg

DRUGS (2)
  1. PRENATAL VITAMINS [Concomitant]
     Active Substance: VITAMINS
  2. MIRENA [Suspect]
     Active Substance: LEVONORGESTREL
     Indication: CONTRACEPTION
     Dosage: 20 MCG/24HR, CONT
     Route: 015
     Dates: start: 20111108, end: 20140402

REACTIONS (14)
  - Uterine perforation [Not Recovered/Not Resolved]
  - Complication of device removal [None]
  - Pain [Not Recovered/Not Resolved]
  - High risk pregnancy [None]
  - Depression [None]
  - Drug ineffective [None]
  - Emotional distress [Not Recovered/Not Resolved]
  - Device breakage [None]
  - Post procedural discomfort [None]
  - Anxiety [None]
  - Pregnancy with contraceptive device [None]
  - Medical device pain [None]
  - Device difficult to use [None]
  - Injury [Not Recovered/Not Resolved]

NARRATIVE: CASE EVENT DATE: 20111108
